FAERS Safety Report 20126885 (Version 1)
Quarter: 2021Q4

REPORT INFORMATION
  Report Type: Spontaneous
  Country: SE (occurrence: SE)
  Receive Date: 20211129
  Receipt Date: 20211129
  Transmission Date: 20220303
  Serious: Yes (Other)
  Sender: FDA-Public Use
  Company Number: SE-ALLERGAN-2110425US

PATIENT
  Sex: Female

DRUGS (1)
  1. DEOXYCHOLIC ACID [Suspect]
     Active Substance: DEOXYCHOLIC ACID
     Indication: Fat tissue increased
     Dosage: UNK, SINGLE
     Route: 058
     Dates: start: 20210121, end: 20210121

REACTIONS (3)
  - Swelling [Not Recovered/Not Resolved]
  - Scar [Not Recovered/Not Resolved]
  - Injection site induration [Not Recovered/Not Resolved]
